FAERS Safety Report 5642897-3 (Version None)
Quarter: 2008Q1

REPORT INFORMATION
  Report Type: 
  Country: None (occurrence: None)
  Receive Date: 20080228
  Receipt Date: 20080221
  Transmission Date: 20080703
  Serious: Yes (Other)
  Sender: FDA-Public Use
  Company Number: US-ASTRAZENECA-2008UW03684

PATIENT
  Age: 74 Year
  Sex: Female

DRUGS (4)
  1. ARIMIDEX [Suspect]
     Route: 048
  2. ARIMIDEX [Suspect]
     Route: 048
  3. FASLODEX [Concomitant]
     Route: 030
  4. FASLODEX [Concomitant]
     Route: 030

REACTIONS (1)
  - PANCREATITIS [None]
